FAERS Safety Report 9818629 (Version 1)
Quarter: 2013Q4

REPORT INFORMATION
  Report Type: Spontaneous
  Country: US (occurrence: None)
  Receive Date: 20131223
  Receipt Date: 20131223
  Transmission Date: 20140711
  Serious: Yes (Other)
  Sender: FDA-Public Use
  Company Number: 222079

PATIENT
  Age: 77 Year
  Sex: Female

DRUGS (2)
  1. PICATO GEL [Suspect]
     Indication: ACTINIC KERATOSIS
     Dosage: (DAILY), DERMAL
     Dates: start: 20130521
  2. VALSARTAN/HCTZ (CO-DIOVAN) [Concomitant]

REACTIONS (5)
  - Application site erythema [None]
  - Application site warmth [None]
  - Off label use [None]
  - Drug administered at inappropriate site [None]
  - Off label use [None]
